FAERS Safety Report 6083386-4 (Version None)
Quarter: 2009Q1

REPORT INFORMATION
  Report Type: 
  Country: None (occurrence: None)
  Receive Date: 20090213
  Receipt Date: 20090213
  Transmission Date: 20090719
  Serious: Yes (Hospitalization)
  Sender: FDA-Public Use
  Company Number: None

PATIENT
  Sex: Male
  Weight: 87.3 kg

DRUGS (5)
  1. RITUXIMAB (MOABC2B8 ANTI CD2O, CHIMERIC) [Suspect]
     Dosage: 800 MG
  2. VINCRISTINE SULFATE [Suspect]
     Dosage: 2.7 MG
  3. DOXORUBICIN HYDROCHLORIDE [Suspect]
     Dosage: 66 MG
  4. ETOPOSIDE [Suspect]
     Dosage: 330 MG
  5. PREDNISONE [Suspect]
     Dosage: 390 MG

REACTIONS (8)
  - ANXIETY [None]
  - BRONCHIAL OBSTRUCTION [None]
  - BRONCHOSTENOSIS [None]
  - DISEASE PROGRESSION [None]
  - HYPOXIA [None]
  - LUNG CONSOLIDATION [None]
  - PULMONARY HILUM MASS [None]
  - TACHYCARDIA [None]
